FAERS Safety Report 8790851 (Version 1)
Quarter: 2012Q4

REPORT INFORMATION
  Report Type: Spontaneous
  Country: US (occurrence: None)
  Receive Date: 20120913
  Receipt Date: 20120913
  Transmission Date: 20130627
  Serious: Yes (Other)
  Sender: FDA-Public Use
  Company Number: None

PATIENT
  Age: 66 Year
  Sex: Male
  Weight: 92.53 kg

DRUGS (1)
  1. HORIZANT [Suspect]
     Indication: RESTLESS LEG SYNDROME
     Dosage: 600mg one per day po
     Route: 048
     Dates: start: 20120723, end: 20120727

REACTIONS (6)
  - Eyelid disorder [None]
  - Chest discomfort [None]
  - Dyspnoea [None]
  - Cough [None]
  - Laryngitis [None]
  - Pneumonia [None]
